FAERS Safety Report 8299146-X (Version None)
Quarter: 2012Q2

REPORT INFORMATION
  Report Type: 
  Country: None (occurrence: None)
  Receive Date: 20120419
  Receipt Date: 20120416
  Transmission Date: 20120825
  Serious: Yes (Death, Life-Threatening)
  Sender: FDA-Public Use
  Company Number: CH-ROCHE-CID000000001986567

PATIENT
  Age: 67 Year
  Sex: Female

DRUGS (5)
  1. LISINOPRIL [Concomitant]
     Route: 048
     Dates: start: 20110101, end: 20120322
  2. PANTOPRAZOLE [Concomitant]
     Route: 048
     Dates: start: 20110701, end: 20120322
  3. AMLODIPINE [Concomitant]
     Route: 048
     Dates: start: 20110928, end: 20120322
  4. PACLITAXEL [Suspect]
     Indication: BREAST CANCER
     Dosage: DAY 1 TO DAY 8 FOR 28 DAYS. DATE OF LAST ADMINISTRATION BEFORE SAE ON 22/FEB/2012.
     Route: 042
     Dates: start: 20110726
  5. AVASTIN [Suspect]
     Indication: BREAST CANCER
     Dosage: DAY ONE TO DAY EIGHT FOR 28 DAYS ,
     Route: 042
     Dates: start: 20110716

REACTIONS (4)
  - APHASIA [None]
  - CEREBROVASCULAR ACCIDENT [None]
  - COGNITIVE DISORDER [None]
  - HEMIPLEGIA [None]
